FAERS Safety Report 21096882 (Version 2)
Quarter: 2022Q3

REPORT INFORMATION
  Report Type: Report from Study
  Country: US (occurrence: US)
  Receive Date: 20220718
  Receipt Date: 20220725
  Transmission Date: 20221027
  Serious: Yes (Death)
  Sender: FDA-Public Use
  Company Number: US-AMGEN-USACT2022118848

PATIENT
  Age: 67 Year
  Sex: Male
  Weight: 60.8 kg

DRUGS (11)
  1. SOTORASIB [Suspect]
     Active Substance: SOTORASIB
     Indication: Colorectal cancer stage IV
     Dosage: 960 MILLIGRAM
     Route: 048
     Dates: start: 20220208, end: 20220503
  2. SOTORASIB [Suspect]
     Active Substance: SOTORASIB
     Indication: K-ras gene mutation
  3. BATOPROTAFIB [Suspect]
     Active Substance: BATOPROTAFIB
     Indication: K-ras gene mutation
     Dosage: 20 MILLIGRAM
     Route: 048
     Dates: start: 20220208
  4. BATOPROTAFIB [Suspect]
     Active Substance: BATOPROTAFIB
     Indication: Colorectal cancer stage IV
  5. MIRTAZAPINE [Concomitant]
     Active Substance: MIRTAZAPINE
     Dosage: 30 MILLIGRAM
     Route: 048
     Dates: start: 20220525
  6. AMLODIPINE [Concomitant]
     Active Substance: AMLODIPINE BESYLATE
     Dosage: 5 MILLIGRAM
     Route: 048
     Dates: start: 20220114
  7. TYLENOL [Concomitant]
     Active Substance: ACETAMINOPHEN
     Dosage: 500 MILLIGRAM
     Route: 048
     Dates: start: 20210909
  8. PROCHLORPERAZINE [Concomitant]
     Active Substance: PROCHLORPERAZINE
     Dosage: 10 MILLIGRAM
     Route: 048
     Dates: start: 202108
  9. TRAMADOL [Concomitant]
     Active Substance: TRAMADOL
     Dosage: 50 MILLIGRAM
     Route: 048
     Dates: start: 202109
  10. OXYCODONE [Concomitant]
     Active Substance: OXYCODONE
     Dosage: 5 MILLIGRAM
     Route: 048
     Dates: start: 20220125
  11. MORPHINE SULFATE [Concomitant]
     Active Substance: MORPHINE SULFATE
     Dosage: 15 MILLIGRAM
     Route: 048
     Dates: start: 20220602

REACTIONS (1)
  - Colorectal cancer metastatic [Fatal]

NARRATIVE: CASE EVENT DATE: 20220708
